FAERS Safety Report 5317117-X (Version None)
Quarter: 2007Q2

REPORT INFORMATION
  Report Type: 
  Country: None (occurrence: None)
  Receive Date: 20070504
  Receipt Date: 20070419
  Transmission Date: 20071010
  Serious: Yes (Hospitalization, Other)
  Sender: FDA-Public Use
  Company Number: US-PFIZER INC-2005021852

PATIENT
  Sex: Male
  Weight: 103.9 kg

DRUGS (7)
  1. BEXTRA [Suspect]
     Indication: ARTHRITIS
     Route: 048
  2. BEXTRA [Suspect]
     Indication: ARTHRALGIA
  3. VIOXX [Suspect]
  4. TOPROL-XL [Concomitant]
  5. ZOCOR [Concomitant]
  6. NITROGLYCERIN [Concomitant]
  7. ACETYLSALICYLIC ACID SRT [Concomitant]
     Route: 048

REACTIONS (8)
  - AMNESIA [None]
  - ANXIETY [None]
  - CARDIAC DISORDER [None]
  - CEREBROVASCULAR ACCIDENT [None]
  - CHEST PAIN [None]
  - DEPRESSION [None]
  - DYSPNOEA [None]
  - PLEURAL EFFUSION [None]
